FAERS Safety Report 5756237-2 (Version None)
Quarter: 2008Q2

REPORT INFORMATION
  Report Type: 
  Country: None (occurrence: None)
  Receive Date: 20080602
  Receipt Date: 20080521
  Transmission Date: 20081010
  Serious: Yes (Hospitalization)
  Sender: FDA-Public Use
  Company Number: JP-PFIZER INC-2008042672

PATIENT
  Sex: Female

DRUGS (4)
  1. ZOLOFT [Suspect]
     Indication: DEPRESSION
     Dosage: DAILY DOSE:50MG
     Route: 048
     Dates: start: 20071126, end: 20080304
  2. ALL OTHER THERAPEUTIC PRODUCTS [Suspect]
     Indication: SLEEP DISORDER
     Route: 048
  3. BROTIZOLAM [Suspect]
     Indication: INSOMNIA
     Dosage: DAILY DOSE:.5MG
     Route: 048
  4. FLUNITRAZEPAM [Suspect]
     Indication: INSOMNIA
     Dosage: DAILY DOSE:2MG
     Route: 048

REACTIONS (3)
  - ALCOHOLIC LIVER DISEASE [None]
  - LIVER DISORDER [None]
  - REFLUX OESOPHAGITIS [None]
